FAERS Safety Report 7323284-9 (Version None)
Quarter: 2011Q1

REPORT INFORMATION
  Report Type: 
  Country: None (occurrence: None)
  Receive Date: 20110301
  Receipt Date: 20110217
  Transmission Date: 20110831
  Serious: Yes (Other)
  Sender: FDA-Public Use
  Company Number: CA-SANOFI-AVENTIS-2011SA010492

PATIENT
  Age: 35 Year
  Sex: Female

DRUGS (2)
  1. ZOLPIDEM TARTRATE [Suspect]
     Indication: INSOMNIA
     Route: 048
     Dates: start: 20101220, end: 20101220
  2. NAPROXEN SODIUM [Concomitant]
     Route: 065
     Dates: start: 20101218, end: 20101218

REACTIONS (2)
  - OVERDOSE [None]
  - SLEEP PARALYSIS [None]
